FAERS Safety Report 5828851-7 (Version None)
Quarter: 2008Q3

REPORT INFORMATION
  Report Type: 
  Country: None (occurrence: None)
  Receive Date: 20080731
  Receipt Date: 20080722
  Transmission Date: 20090109
  Serious: Yes (Hospitalization)
  Sender: FDA-Public Use
  Company Number: BR-JNJFOC-20080705664

PATIENT
  Age: 50 Year
  Sex: Female

DRUGS (3)
  1. REMICADE [Suspect]
     Indication: RHEUMATOID ARTHRITIS
     Dosage: 5 INFUSIONS
     Route: 042
  2. METHOTREXATE [Concomitant]
     Indication: RHEUMATOID ARTHRITIS
  3. CORTICOID [Concomitant]
     Indication: RHEUMATOID ARTHRITIS

REACTIONS (3)
  - HERPES ZOSTER [None]
  - INFUSION RELATED REACTION [None]
  - URTICARIA [None]
